FAERS Safety Report 14894839 (Version 2)
Quarter: 2018Q3

REPORT INFORMATION
  Report Type: Spontaneous
  Country: IT (occurrence: IT)
  Receive Date: 20180515
  Receipt Date: 20180703
  Transmission Date: 20181010
  Serious: Yes (Hospitalization)
  Sender: FDA-Public Use
  Company Number: IT-TEVA-2018-IT-890709

PATIENT
  Age: 77 Year
  Sex: Male

DRUGS (8)
  1. EUTIROX 75 MICROGRAMMI COMPRESSE [Concomitant]
     Active Substance: LEVOTHYROXINE SODIUM
     Route: 065
  2. LYRICA [Concomitant]
     Active Substance: PREGABALIN
     Route: 048
  3. SERTRALINE [Suspect]
     Active Substance: SERTRALINE HYDROCHLORIDE
     Indication: DEPRESSION
     Dosage: 100 MILLIGRAM DAILY;
     Route: 048
     Dates: start: 20170101, end: 20171115
  4. BRINTELLIX [Concomitant]
     Active Substance: VORTIOXETINE HYDROBROMIDE
     Route: 065
  5. SINEMET [Suspect]
     Active Substance: CARBIDOPA\LEVODOPA
     Indication: PARKINSON^S DISEASE
     Dosage: 125 MILLIGRAM DAILY;
     Route: 048
     Dates: start: 20170101, end: 20171115
  6. CARBOLITHIUM 150 MG CAPSULE RIGIDE [Suspect]
     Active Substance: LITHIUM CARBONATE
     Indication: BIPOLAR DISORDER
     Dosage: 300 MILLIGRAM DAILY;
     Route: 048
     Dates: start: 20170101, end: 20171115
  7. LORAZEPAM. [Concomitant]
     Active Substance: LORAZEPAM
     Route: 048
     Dates: start: 20170101, end: 20171115
  8. METFORMIN [Concomitant]
     Active Substance: METFORMIN HYDROCHLORIDE
     Route: 065

REACTIONS (2)
  - Dysarthria [Unknown]
  - Balance disorder [Unknown]

NARRATIVE: CASE EVENT DATE: 20171114
